FAERS Safety Report 7349417-6 (Version None)
Quarter: 2011Q1

REPORT INFORMATION
  Report Type: 
  Country: None (occurrence: None)
  Receive Date: 20110314
  Receipt Date: 20100430
  Transmission Date: 20110831
  Serious: No
  Sender: FDA-Public Use
  Company Number: US-ABBOTT-10P-163-0642594-00

PATIENT
  Sex: Male
  Weight: 95.34 kg

DRUGS (1)
  1. DEPAKOTE [Suspect]
     Indication: AFFECTIVE DISORDER
     Dosage: 1250 MG DAILY- THREE  TABS A DAY
     Dates: start: 20020101

REACTIONS (2)
  - DYSPHAGIA [None]
  - TREMOR [None]
